FAERS Safety Report 5136820-8 (Version None)
Quarter: 2006Q4

REPORT INFORMATION
  Report Type: 
  Country: None (occurrence: None)
  Receive Date: 20061013
  Receipt Date: 20061005
  Transmission Date: 20070319
  Serious: Yes (Death)
  Sender: FDA-Public Use
  Company Number: 200610754

PATIENT
  Age: 18 Month
  Sex: Male
  Weight: 18 kg

DRUGS (1)
  1. SANDOGLOBULINA IMMUNGLOBULIN G (HUMAN IGG) LYOPHILIZED POWDER (IMMUNOG [Suspect]
     Indication: VIRAL MYOCARDITIS
     Dosage: SEE IMAGE
     Route: 042

REACTIONS (3)
  - DISEASE PROGRESSION [None]
  - NONSPECIFIC REACTION [None]
  - VIRAL MYOCARDITIS [None]
